FAERS Safety Report 6823313-2 (Version None)
Quarter: 2010Q3

REPORT INFORMATION
  Report Type: 
  Country: None (occurrence: None)
  Receive Date: 20100708
  Receipt Date: 20100628
  Transmission Date: 20110219
  Serious: Yes (Other)
  Sender: FDA-Public Use
  Company Number: US-ABBOTT-10P-163-0653140-00

PATIENT
  Sex: Male
  Weight: 86.26 kg

DRUGS (8)
  1. SIMCOR [Suspect]
     Indication: HIGH DENSITY LIPOPROTEIN DECREASED
     Dosage: 500MG/20MG ONCE DAILY
     Route: 048
     Dates: start: 20091001, end: 20091001
  2. SIMCOR [Suspect]
     Dosage: 500MG/20MG ONCE DAILY
     Route: 048
     Dates: start: 20100613, end: 20100627
  3. BLOOD PRESSURE MEDICATION [Concomitant]
     Indication: HYPERTENSION
  4. LISINOPRIL [Concomitant]
     Indication: HYPERTENSION
  5. COREG [Concomitant]
     Indication: HYPERTENSION
  6. ASPIRIN [Concomitant]
     Indication: PRODUCT USED FOR UNKNOWN INDICATION
  7. CRESTOR [Concomitant]
     Indication: BLOOD CHOLESTEROL INCREASED
     Dates: start: 20090101, end: 20100601
  8. INSULIN [Concomitant]
     Indication: DIABETES MELLITUS
     Route: 058

REACTIONS (17)
  - BLOOD GLUCOSE INCREASED [None]
  - BURNING SENSATION [None]
  - CALCULUS BLADDER [None]
  - CARDIAC DISORDER [None]
  - DYSPEPSIA [None]
  - DYSPNOEA [None]
  - HEADACHE [None]
  - HEART RATE IRREGULAR [None]
  - HOT FLUSH [None]
  - KIDNEY INFECTION [None]
  - LIP SWELLING [None]
  - MUSCULAR WEAKNESS [None]
  - NEPHROLITHIASIS [None]
  - PROCEDURAL COMPLICATION [None]
  - PRURITUS [None]
  - RENAL IMPAIRMENT [None]
  - RENAL PAIN [None]
